FAERS Safety Report 11753817 (Version 1)
Quarter: 2015Q4

REPORT INFORMATION
  Report Type: Spontaneous
  Country: GB (occurrence: GB)
  Receive Date: 20151119
  Receipt Date: 20151119
  Transmission Date: 20160304
  Serious: Yes (Hospitalization, Other)
  Sender: FDA-Public Use
  Company Number: GB-TEVA-608121ACC

PATIENT
  Age: 69 Year
  Sex: Female
  Weight: 88 kg

DRUGS (16)
  1. CODEINE [Concomitant]
     Active Substance: CODEINE
  2. LACTULOSE SOLUTION [Concomitant]
  3. DALTEPARIN [Concomitant]
     Active Substance: DALTEPARIN
  4. FUROSEMIDE. [Suspect]
     Active Substance: FUROSEMIDE
     Indication: FLUID RETENTION
     Dosage: 80 MILLIGRAM DAILY;
     Route: 048
     Dates: start: 20151023, end: 20151026
  5. SENNA [Concomitant]
     Active Substance: SENNA LEAF\SENNOSIDES\SENNOSIDES A AND B
  6. ZOPICLONE [Concomitant]
     Active Substance: ZOPICLONE
  7. BISOPROLOL [Concomitant]
     Active Substance: BISOPROLOL
  8. CLOPIDOGREL [Concomitant]
     Active Substance: CLOPIDOGREL BISULFATE
  9. MORPHINE SULPHATE [Concomitant]
     Active Substance: MORPHINE SULFATE
  10. ASPIRIN COATED [Concomitant]
  11. OMEPRAZOLE. [Concomitant]
     Active Substance: OMEPRAZOLE
  12. SIMVASTATIN. [Concomitant]
     Active Substance: SIMVASTATIN
  13. MAGNESIUM ASPARTATE [Concomitant]
     Active Substance: MAGNESIUM ASPARTATE
  14. PARACETAMOL [Concomitant]
     Active Substance: ACETAMINOPHEN
  15. VENLAFAXINE [Concomitant]
     Active Substance: VENLAFAXINE HYDROCHLORIDE
  16. CO-AMOXICLAV [Concomitant]
     Active Substance: AMOXICILLIN\CLAVULANIC ACID

REACTIONS (8)
  - Tongue blistering [Not Recovered/Not Resolved]
  - Pain [Not Recovered/Not Resolved]
  - Pemphigoid [Not Recovered/Not Resolved]
  - Tenderness [Not Recovered/Not Resolved]
  - Skin lesion [Not Recovered/Not Resolved]
  - Blister [Not Recovered/Not Resolved]
  - Mouth ulceration [Not Recovered/Not Resolved]
  - Lip ulceration [Not Recovered/Not Resolved]

NARRATIVE: CASE EVENT DATE: 20151024
